FAERS Safety Report 19592400 (Version 1)
Quarter: 2021Q3

REPORT INFORMATION
  Report Type: Report from Study
  Country: None (occurrence: AR)
  Receive Date: 20210722
  Receipt Date: 20210722
  Transmission Date: 20211014
  Serious: Yes (Death, Hospitalization, Other)
  Sender: FDA-Public Use
  Company Number: AR-ABBVIE-21K-007-3988142-00

PATIENT
  Sex: Male

DRUGS (1)
  1. HUMIRA [Suspect]
     Active Substance: ADALIMUMAB
     Indication: UVEITIS
     Route: 058
     Dates: start: 20180428

REACTIONS (3)
  - Immunodeficiency [Not Recovered/Not Resolved]
  - Renal disorder [Unknown]
  - COVID-19 [Fatal]

NARRATIVE: CASE EVENT DATE: 2019
